FAERS Safety Report 10357962 (Version 1)
Quarter: 2014Q3

REPORT INFORMATION
  Report Type: Spontaneous
  Country: RS (occurrence: RS)
  Receive Date: 20140801
  Receipt Date: 20140801
  Transmission Date: 20150326
  Serious: Yes (Other)
  Sender: FDA-Public Use
  Company Number: RS-ACTAVIS-2014-16464

PATIENT
  Age: 47 Year
  Sex: Female
  Weight: 70 kg

DRUGS (4)
  1. HERCEPTIN [Concomitant]
     Active Substance: TRASTUZUMAB
     Indication: BREAST CANCER FEMALE
     Dosage: 420 MG, CYCLICAL
     Route: 041
     Dates: start: 20140618, end: 20140618
  2. DEXASON                            /00016001/ [Concomitant]
     Indication: BREAST CANCER FEMALE
     Dosage: UNK, CYCLICAL PREMEDIATION
     Route: 042
     Dates: start: 20140618, end: 20140618
  3. DOCETAXEL (UNKNOWN) [Suspect]
     Active Substance: DOCETAXEL
     Indication: BREAST CANCER FEMALE
     Dosage: 140 MG, UNK
     Route: 041
     Dates: start: 20140618, end: 20140618
  4. RANITIDIN [Concomitant]
     Active Substance: RANITIDINE HYDROCHLORIDE
     Indication: BREAST CANCER FEMALE
     Dosage: UNK, CYCLICAL PREMEDICATION
     Route: 042
     Dates: start: 20140618, end: 20140618

REACTIONS (5)
  - Anxiety [Recovered/Resolved]
  - Hypersensitivity [Recovered/Resolved]
  - Sinus tachycardia [Recovered/Resolved]
  - Blood pressure increased [Recovered/Resolved]
  - Chest discomfort [Recovered/Resolved]

NARRATIVE: CASE EVENT DATE: 20140618
